FAERS Safety Report 4370307-5 (Version None)
Quarter: 2004Q2

REPORT INFORMATION
  Report Type: 
  Country: None (occurrence: None)
  Receive Date: 20040603
  Receipt Date: 20040308
  Transmission Date: 20050107
  Serious: No
  Sender: FDA-Public Use
  Company Number: US-BRISTOL-MYERS SQUIBB COMPANY-12526976

PATIENT
  Age: 4 Year
  Sex: Male
  Weight: 21 kg

DRUGS (9)
  1. ABILIFY [Suspect]
     Indication: ATTENTION DEFICIT/HYPERACTIVITY DISORDER
     Dosage: INITIATED 25-JAN-04 (2.5 MG/DAY), INC TO 5 MG/DAY ON 13-FEB-04; DECREASED ON 04-MAR-04.
     Route: 048
     Dates: start: 20040125
  2. ABILIFY [Suspect]
     Indication: OBSESSIVE-COMPULSIVE DISORDER
     Dosage: INITIATED 25-JAN-04 (2.5 MG/DAY), INC TO 5 MG/DAY ON 13-FEB-04; DECREASED ON 04-MAR-04.
     Route: 048
     Dates: start: 20040125
  3. ABILIFY [Suspect]
     Dosage: INITIATED 25-JAN-04 (2.5 MG/DAY), INC TO 5 MG/DAY ON 13-FEB-04; DECREASED ON 04-MAR-04.
     Route: 048
     Dates: start: 20040125
  4. ABILIFY [Suspect]
     Indication: AGGRESSION
     Dosage: INITIATED 25-JAN-04 (2.5 MG/DAY), INC TO 5 MG/DAY ON 13-FEB-04; DECREASED ON 04-MAR-04.
     Route: 048
     Dates: start: 20040125
  5. ABILIFY [Suspect]
     Indication: PSYCHOMOTOR HYPERACTIVITY
     Dosage: INITIATED 25-JAN-04 (2.5 MG/DAY), INC TO 5 MG/DAY ON 13-FEB-04; DECREASED ON 04-MAR-04.
     Route: 048
     Dates: start: 20040125
  6. CLONIDINE HCL [Concomitant]
  7. PROZAC [Concomitant]
  8. CLARITIN [Concomitant]
     Dosage: DOSE = 1 TEASPOON
  9. RHINOCORT [Concomitant]
     Dosage: DOSE = 1 SPRAY EACH NOSTRIL
     Route: 045

REACTIONS (2)
  - SOMNOLENCE [None]
  - TREMOR [None]
